FAERS Safety Report 6557507-0 (Version None)
Quarter: 2010Q1

REPORT INFORMATION
  Report Type: 
  Country: None (occurrence: None)
  Receive Date: 20100129
  Receipt Date: 20100118
  Transmission Date: 20100710
  Serious: Yes (Death, Hospitalization)
  Sender: FDA-Public Use
  Company Number: SA-ROCHE-680331

PATIENT
  Age: 23 Year
  Sex: Male

DRUGS (5)
  1. MYCOPHENOLATE MOFETIL [Suspect]
     Route: 065
  2. METHYLPREDNISOLONE [Suspect]
     Route: 065
  3. CYCLOSPORINE [Suspect]
     Route: 065
  4. TACROLIMUS [Suspect]
     Route: 065
  5. ANTI-THYMOCYTE GLOBULIN NOS [Suspect]
     Route: 065

REACTIONS (10)
  - ACUTE GRAFT VERSUS HOST DISEASE IN INTESTINE [None]
  - ACUTE GRAFT VERSUS HOST DISEASE IN SKIN [None]
  - BACTERIAL SEPSIS [None]
  - BRONCHOPULMONARY ASPERGILLOSIS [None]
  - CYTOMEGALOVIRUS INFECTION [None]
  - ESCHERICHIA SEPSIS [None]
  - FEBRILE NEUTROPENIA [None]
  - MULTI-ORGAN FAILURE [None]
  - PANCYTOPENIA [None]
  - TRANSPLANT FAILURE [None]
